FAERS Safety Report 8869352 (Version 1)
Quarter: 2012Q4

REPORT INFORMATION
  Report Type: Spontaneous
  Country: FR (occurrence: None)
  Receive Date: 20121024
  Receipt Date: 20121024
  Transmission Date: 20130627
  Serious: Yes (Other)
  Sender: FDA-Public Use
  Company Number: 2012000227

PATIENT
  Age: 70 Year
  Sex: Male
  Weight: 94 kg

DRUGS (3)
  1. ACEON [Suspect]
     Indication: HYPERTENSION
     Dates: start: 201108, end: 201202
  2. ALLOPURINOL [Concomitant]
  3. JOSIR (TAMSULOSIN HYDROCHLORIDE) [Concomitant]

REACTIONS (2)
  - Drug ineffective [None]
  - Product substitution issue [None]
